FAERS Safety Report 16277071 (Version 1)
Quarter: 2019Q2

REPORT INFORMATION
  Report Type: Spontaneous
  Country: US (occurrence: US)
  Receive Date: 20190506
  Receipt Date: 20190506
  Transmission Date: 20190711
  Serious: Yes (Other)
  Sender: FDA-Public Use
  Company Number: US-PFIZER INC-2019187434

PATIENT
  Age: 66 Year
  Sex: Male

DRUGS (4)
  1. CLINDAMYCIN PHOSPHATE. [Suspect]
     Active Substance: CLINDAMYCIN PHOSPHATE
     Indication: SEPSIS
     Dosage: UNK
     Route: 042
     Dates: start: 19840526, end: 19840603
  2. CLINDAMYCIN PHOSPHATE. [Suspect]
     Active Substance: CLINDAMYCIN PHOSPHATE
     Dosage: UNK
     Route: 042
     Dates: start: 19840621, end: 19840627
  3. AMIKACIN SULFATE. [Suspect]
     Active Substance: AMIKACIN SULFATE
     Indication: SEPSIS
     Dosage: UNK
     Route: 042
     Dates: start: 19840526, end: 19840603
  4. BENZYLPENICILLIN POTASSIUM [Suspect]
     Active Substance: PENICILLIN G POTASSIUM
     Indication: SEPSIS
     Dosage: UNK
     Route: 042
     Dates: start: 19840621, end: 19840627

REACTIONS (1)
  - Clostridium difficile colitis [Recovered/Resolved]
